FAERS Safety Report 9127033 (Version 1)
Quarter: 2013Q1

REPORT INFORMATION
  Report Type: Spontaneous
  Country: CO (occurrence: CO)
  Receive Date: 20130228
  Receipt Date: 20130228
  Transmission Date: 20140127
  Serious: Yes (Death)
  Sender: FDA-Public Use
  Company Number: PHHY2013CO019540

PATIENT
  Sex: Female

DRUGS (6)
  1. SANDOSTATIN LAR [Suspect]
     Indication: NEUROENDOCRINE TUMOUR
     Dosage: 30 MG, PER MONTH
     Route: 030
     Dates: start: 201212
  2. SANDOSTATIN LAR [Suspect]
     Dosage: 30 MG, PER MONTH
     Route: 030
  3. AMLODIPIN ^ORIFARM^ [Concomitant]
     Dosage: UNK
  4. AMITRIPTYLINE [Concomitant]
  5. MORFINE [Concomitant]
  6. OMEPRAZOLE [Concomitant]

REACTIONS (1)
  - Terminal state [Fatal]
